FAERS Safety Report 26069021 (Version 1)
Quarter: 2025Q4

REPORT INFORMATION
  Report Type: Spontaneous
  Country: JP (occurrence: JP)
  Receive Date: 20251120
  Receipt Date: 20251120
  Transmission Date: 20260118
  Serious: Yes (Other)
  Sender: BAXTER
  Company Number: JP-shionogi-202500011916

PATIENT
  Age: 78 Year
  Sex: Female

DRUGS (8)
  1. CYCLOPHOSPHAMIDE [Suspect]
     Active Substance: CYCLOPHOSPHAMIDE
     Indication: Plasma cell myeloma refractory
     Dosage: CHOP THERAPY (5 CYCLES)
     Route: 065
  2. CYCLOPHOSPHAMIDE [Suspect]
     Active Substance: CYCLOPHOSPHAMIDE
     Indication: Lymphodepletion
     Dosage: FOR LYMPHODEPLETION
     Route: 065
  3. PREDNISONE [Suspect]
     Active Substance: PREDNISONE
     Indication: Plasma cell myeloma refractory
     Dosage: CHOP THERAPY (5 CYCLES)
     Route: 065
  4. DOXORUBICIN [Suspect]
     Active Substance: DOXORUBICIN
     Indication: Plasma cell myeloma refractory
     Dosage: CHOP THERAPY (5 CYCLES)
     Route: 065
  5. VINCRISTINE [Suspect]
     Active Substance: VINCRISTINE
     Indication: Plasma cell myeloma refractory
     Dosage: CHOP THERAPY (5 CYCLES)
     Route: 065
  6. FLUDARABINE [Suspect]
     Active Substance: FLUDARABINE PHOSPHATE
     Indication: Plasma cell myeloma refractory
     Dosage: FOR LYMPHODEPLETION
     Route: 065
  7. FLUDARABINE [Suspect]
     Active Substance: FLUDARABINE PHOSPHATE
     Indication: Lymphodepletion
  8. IDECABTAGENE VICLEUCEL [Suspect]
     Active Substance: IDECABTAGENE VICLEUCEL
     Indication: Plasma cell myeloma refractory
     Dosage: UNK
     Route: 065

REACTIONS (7)
  - Cytokine release syndrome [Unknown]
  - Second primary malignancy [Unknown]
  - Cytopenia [Unknown]
  - Bone marrow failure [Unknown]
  - Cytomegalovirus infection [Unknown]
  - Cytogenetic abnormality [Unknown]
  - Leukocytosis [Unknown]
